FAERS Safety Report 10171940 (Version 1)
Quarter: 2014Q2

REPORT INFORMATION
  Report Type: Spontaneous
  Country: US (occurrence: US)
  Receive Date: 20140515
  Receipt Date: 20140515
  Transmission Date: 20141212
  Serious: No
  Sender: FDA-Public Use
  Company Number: US-009507513-1405USA001804

PATIENT
  Age: 80 Year
  Sex: Male

DRUGS (3)
  1. ZOCOR [Suspect]
     Indication: DEPRESSION
     Dosage: UNK
     Route: 048
     Dates: start: 201404
  2. COUMADIN [Concomitant]
  3. XANAX [Concomitant]

REACTIONS (2)
  - Insomnia [Not Recovered/Not Resolved]
  - Drug administration error [Unknown]
